FAERS Safety Report 12113739 (Version 2)
Quarter: 2016Q1

REPORT INFORMATION
  Report Type: Report from Study
  Country: US (occurrence: US)
  Receive Date: 20160225
  Receipt Date: 20160321
  Transmission Date: 20160526
  Serious: Yes (Hospitalization)
  Sender: FDA-Public Use
  Company Number: US-BEH-2016058959

PATIENT
  Age: 39 Year
  Sex: Female
  Weight: 77 kg

DRUGS (1)
  1. ZEMAIRA [Suspect]
     Active Substance: .ALPHA.1-PROTEINASE INHIBITOR HUMAN
     Indication: ALPHA-1 ANTI-TRYPSIN DEFICIENCY
     Dosage: WEEKLY
     Route: 042

REACTIONS (2)
  - Exposure to contaminated air [Recovering/Resolving]
  - Accident at work [Recovering/Resolving]

NARRATIVE: CASE EVENT DATE: 20160208
